FAERS Safety Report 6897168-4 (Version None)
Quarter: 2010Q3

REPORT INFORMATION
  Report Type: 
  Country: None (occurrence: None)
  Receive Date: 20100802
  Receipt Date: 20070419
  Transmission Date: 20110219
  Serious: Yes (Hospitalization, Other)
  Sender: FDA-Public Use
  Company Number: US-PFIZER INC-2007032111

PATIENT
  Age: 85 Year
  Sex: Male

DRUGS (4)
  1. LYRICA [Suspect]
     Indication: POST HERPETIC NEURALGIA
  2. TEGRETOL [Concomitant]
  3. ADVIL LIQUI-GELS [Concomitant]
  4. VICODIN [Concomitant]

REACTIONS (1)
  - COMA [None]
